FAERS Safety Report 13812623 (Version 1)
Quarter: 2017Q3

REPORT INFORMATION
  Report Type: Spontaneous
  Country: JP (occurrence: JP)
  Receive Date: 20170730
  Receipt Date: 20170730
  Transmission Date: 20171127
  Serious: Yes (Hospitalization)
  Sender: FDA-Public Use
  Company Number: JP-DSJP-DSJ-2017-124762

PATIENT

DRUGS (16)
  1. TENELIGLIPTIN HYDROBROMIDE [Concomitant]
     Active Substance: TENELIGLIPTIN HYDROBROMIDE ANHYDROUS
     Dosage: 40MG/DAY
     Route: 048
  2. URAPIDIL [Concomitant]
     Active Substance: URAPIDIL
     Indication: PRODUCT USED FOR UNKNOWN INDICATION
     Dosage: 30MG/DAY
     Route: 048
  3. FEXOFENADINE [Concomitant]
     Active Substance: FEXOFENADINE\FEXOFENADINE HYDROCHLORIDE
     Indication: PRODUCT USED FOR UNKNOWN INDICATION
     Dosage: 60MG/DAY
     Route: 048
  4. TENELIGLIPTIN HYDROBROMIDE [Concomitant]
     Active Substance: TENELIGLIPTIN HYDROBROMIDE ANHYDROUS
     Indication: TYPE 2 DIABETES MELLITUS
     Dosage: 40MG/DAY
     Route: 048
  5. FUROSEMIDE. [Concomitant]
     Active Substance: FUROSEMIDE
     Indication: PRODUCT USED FOR UNKNOWN INDICATION
     Dosage: 20MG/DAY
     Route: 048
  6. REPAGLINIDE. [Suspect]
     Active Substance: REPAGLINIDE
     Indication: TYPE 2 DIABETES MELLITUS
     Dosage: 1.5MG/DAY
     Route: 048
  7. VOGLIBOSE [Concomitant]
     Active Substance: VOGLIBOSE
     Dosage: 0.6MG/DAY
     Route: 048
  8. LANSOPRAZOLE. [Concomitant]
     Active Substance: LANSOPRAZOLE
     Indication: PRODUCT USED FOR UNKNOWN INDICATION
     Dosage: 15MG/DAY
     Route: 048
  9. ALLOPURINOL. [Concomitant]
     Active Substance: ALLOPURINOL
     Indication: PRODUCT USED FOR UNKNOWN INDICATION
     Dosage: 100MG/DAY
     Route: 048
  10. OLMETEC [Suspect]
     Active Substance: OLMESARTAN MEDOXOMIL
     Indication: PRODUCT USED FOR UNKNOWN INDICATION
     Dosage: 40MG/DAY
     Route: 048
  11. TENELIGLIPTIN HYDROBROMIDE [Concomitant]
     Active Substance: TENELIGLIPTIN HYDROBROMIDE ANHYDROUS
     Dosage: 20MG/DAY
     Route: 048
  12. BARNIDIPINE [Concomitant]
     Active Substance: BARNIDIPINE
     Indication: PRODUCT USED FOR UNKNOWN INDICATION
     Dosage: 30MG/DAY
     Route: 048
  13. REPAGLINIDE. [Suspect]
     Active Substance: REPAGLINIDE
     Dosage: 1.5MG/DAY
     Route: 048
  14. CLOPIDOGREL [Suspect]
     Active Substance: CLOPIDOGREL BISULFATE
     Indication: PERIPHERAL ARTERIAL OCCLUSIVE DISEASE
     Dosage: 75MG/DAY
     Route: 048
  15. TENELIGLIPTIN HYDROBROMIDE [Concomitant]
     Active Substance: TENELIGLIPTIN HYDROBROMIDE ANHYDROUS
     Dosage: 20MG/DAY
     Route: 048
  16. VOGLIBOSE [Concomitant]
     Active Substance: VOGLIBOSE
     Indication: TYPE 2 DIABETES MELLITUS
     Dosage: 0.6MG/DAY
     Route: 048

REACTIONS (3)
  - Anaemia [Unknown]
  - Renal impairment [Unknown]
  - Hypoglycaemia [Recovered/Resolved]
